FAERS Safety Report 8132842-3 (Version None)
Quarter: 2012Q1

REPORT INFORMATION
  Report Type: 
  Country: None (occurrence: None)
  Receive Date: 20120207
  Receipt Date: 20120126
  Transmission Date: 20120608
  Serious: Yes (Hospitalization, Other)
  Sender: FDA-Public Use
  Company Number: AUR-APL-2012-00775

PATIENT
  Age: 50 Year
  Sex: Female

DRUGS (2)
  1. LAMOTRIGINE [Suspect]
     Indication: SUICIDE ATTEMPT
     Dosage: (75 MG, 1 D), ORAL, (3.5 GM), ORAL
     Route: 048
  2. REPAGLINIDE [Concomitant]

REACTIONS (12)
  - UNRESPONSIVE TO STIMULI [None]
  - BLOOD PRESSURE DECREASED [None]
  - SINUS TACHYCARDIA [None]
  - HAEMODYNAMIC INSTABILITY [None]
  - BUNDLE BRANCH BLOCK LEFT [None]
  - OVERDOSE [None]
  - TOXICITY TO VARIOUS AGENTS [None]
  - STUPOR [None]
  - ELECTROCARDIOGRAM QRS COMPLEX ABNORMAL [None]
  - CARDIOTOXICITY [None]
  - SUICIDE ATTEMPT [None]
  - RESUSCITATION [None]
